FAERS Safety Report 4553601-4 (Version None)
Quarter: 2004Q4

REPORT INFORMATION
  Report Type: 
  Country: None (occurrence: None)
  Receive Date: 20041227
  Receipt Date: 20041027
  Transmission Date: 20050328
  Serious: No
  Sender: FDA-Public Use
  Company Number: 04P-163-0279229-00

PATIENT
  Age: 63 Year
  Sex: Female
  Weight: 86.637 kg

DRUGS (7)
  1. HUMIRA [Suspect]
     Indication: RHEUMATOID ARTHRITIS
     Dosage: 40 MG, 1 IN 2 WK, SUBCUTANEOUS
     Route: 058
     Dates: start: 20040701
  2. METFORMIN HCL [Concomitant]
  3. GLIBENCLAMIDE [Concomitant]
  4. QUINAPRIL HYDROCHLORIDE [Concomitant]
  5. CLONIDINE [Concomitant]
  6. HYZAAR [Concomitant]
  7. FOSINOPRIL SODIUM [Concomitant]

REACTIONS (4)
  - INJECTION SITE ERYTHEMA [None]
  - INJECTION SITE PRURITUS [None]
  - INJECTION SITE SWELLING [None]
  - RASH PRURITIC [None]
